FAERS Safety Report 24691155 (Version 1)
Quarter: 2024Q4

REPORT INFORMATION
  Report Type: Report from Study
  Country: US (occurrence: US)
  Receive Date: 20241203
  Receipt Date: 20241203
  Transmission Date: 20250115
  Serious: Yes (Hospitalization)
  Sender: AEGERION
  Company Number: US-CHIESI LTD.-AEGR007607

PATIENT
  Sex: Female
  Weight: 50.789 kg

DRUGS (1)
  1. FILSUVEZ [Suspect]
     Active Substance: BIRCH TRITERPENES
     Indication: Epidermolysis bullosa
     Dosage: APPLY A 1 MM LAYER TO AFFECTED WOUND SURFACE(S) AT EACH DRESSING CHANGE UNTIL WOUND IS HEALED FOR EB
     Route: 061
     Dates: start: 20240813

REACTIONS (3)
  - Localised infection [Recovering/Resolving]
  - Product dose omission issue [Unknown]
  - Product supply issue [Unknown]
